FAERS Safety Report 23631369 (Version 1)
Quarter: 2024Q1

REPORT INFORMATION
  Report Type: Spontaneous
  Country: HR (occurrence: HR)
  Receive Date: 20240314
  Receipt Date: 20240314
  Transmission Date: 20240410
  Serious: Yes (Other)
  Sender: FDA-Public Use
  Company Number: HR-HALMED-300084169

PATIENT
  Sex: Female

DRUGS (4)
  1. OLANZAPINE [Suspect]
     Active Substance: OLANZAPINE
     Indication: Product used for unknown indication
     Dosage: 67.5 MILLIGRAM, ONCE A DAY
     Route: 048
     Dates: start: 20231218, end: 20231218
  2. RIVOTRIL [Suspect]
     Active Substance: CLONAZEPAM
     Indication: Product used for unknown indication
     Dosage: 6.5 MILLIGRAM, ONCE A DAY
     Route: 048
     Dates: start: 20231218, end: 20231218
  3. SEROQUEL [Suspect]
     Active Substance: QUETIAPINE FUMARATE
     Indication: Product used for unknown indication
     Dosage: UNK (6 X 20 MG(REPORTED DOSAGE UNIT (20 MG) IS NOT AVAILABLE, POSSIBLY 25 MG OR 200 MG))
     Route: 048
     Dates: start: 20231218, end: 20231218
  4. KETOPROFEN [Suspect]
     Active Substance: KETOPROFEN
     Indication: Product used for unknown indication
     Dosage: 300 MILLIGRAM, ONCE A DAY
     Route: 048
     Dates: start: 20231218, end: 20231218

REACTIONS (3)
  - Suicide attempt [Unknown]
  - Intentional overdose [Unknown]
  - No adverse event [Unknown]

NARRATIVE: CASE EVENT DATE: 20231218
